FAERS Safety Report 15533449 (Version 2)
Quarter: 2018Q4

REPORT INFORMATION
  Report Type: Spontaneous
  Country: FR (occurrence: FR)
  Receive Date: 20181019
  Receipt Date: 20181019
  Transmission Date: 20190205
  Serious: Yes (Hospitalization)
  Sender: FDA-Public Use
  Company Number: FR-PFIZER INC-2018413985

PATIENT
  Age: 84 Year
  Sex: Female
  Weight: 56 kg

DRUGS (3)
  1. TRIATEC (RAMIPRIL) [Interacting]
     Active Substance: RAMIPRIL
     Indication: HYPERTENSIVE HEART DISEASE
     Dosage: 5 MG, 1X/DAY
     Route: 048
     Dates: end: 20180827
  2. LASILIX [FUROSEMIDE] [Interacting]
     Active Substance: FUROSEMIDE
     Indication: HYPERTENSIVE HEART DISEASE
     Dosage: 40 MG, EVERY HOUR
     Route: 048
     Dates: start: 201804, end: 20180827
  3. ALDACTONE [Suspect]
     Active Substance: SPIRONOLACTONE
     Indication: HYPERTENSIVE HEART DISEASE
     Dosage: 25 MG, 1X/DAY
     Route: 048
     Dates: start: 201804, end: 20180827

REACTIONS (2)
  - Drug interaction [Recovered/Resolved]
  - Acute kidney injury [Recovered/Resolved]

NARRATIVE: CASE EVENT DATE: 20180827
